FAERS Safety Report 4524974-3 (Version None)
Quarter: 2004Q4

REPORT INFORMATION
  Report Type: 
  Country: None (occurrence: None)
  Receive Date: 20041213
  Receipt Date: 20041203
  Transmission Date: 20050328
  Serious: Yes (Life-Threatening, Hospitalization)
  Sender: FDA-Public Use
  Company Number: CA-AMGEN-US101788

PATIENT
  Sex: Female
  Weight: 57 kg

DRUGS (9)
  1. ENBREL [Suspect]
     Indication: RHEUMATOID ARTHRITIS
     Route: 058
     Dates: start: 20020701
  2. ARAVA [Suspect]
     Dates: start: 20010201, end: 20040601
  3. PREVACID [Concomitant]
  4. PAXIL [Concomitant]
  5. SYNTHROID [Concomitant]
  6. NORVASC [Concomitant]
  7. NYSTATIN [Concomitant]
  8. PREDNISONE [Concomitant]
  9. OXYCODONE HCL [Concomitant]

REACTIONS (10)
  - ACUTE CORONARY SYNDROME [None]
  - ARTHRALGIA [None]
  - CARDIAC FAILURE CONGESTIVE [None]
  - HAEMATOCHEZIA [None]
  - HYPERTENSION [None]
  - ISCHAEMIC HEPATITIS [None]
  - JOINT EFFUSION [None]
  - RENAL FAILURE ACUTE [None]
  - RESPIRATORY FAILURE [None]
  - SEPSIS [None]
